FAERS Safety Report 10366082 (Version 1)
Quarter: 2014Q1

REPORT INFORMATION
  Report Type: Spontaneous
  Country: US (occurrence: None)
  Receive Date: 20140306
  Receipt Date: 20140306
  Transmission Date: 20141002
  Serious: Yes (Hospitalization)
  Sender: FDA-Public Use
  Company Number: 163-21880-13030841

PATIENT
  Age: 66 Year
  Sex: Male

DRUGS (1)
  1. REVLIMID [Suspect]
     Indication: PLASMA CELL MYELOMA
     Dosage: FEB-2013 - TEMPORARILY INTERRUPTED?25 MG, 14 IN 14 D, PO
     Route: 048
     Dates: start: 201302

REACTIONS (4)
  - Constipation [None]
  - Nausea [None]
  - Vomiting [None]
  - Abdominal pain upper [None]
